FAERS Safety Report 10518811 (Version 1)
Quarter: 2014Q4

REPORT INFORMATION
  Report Type: Spontaneous
  Country: US (occurrence: None)
  Receive Date: 20141014
  Receipt Date: 20141014
  Transmission Date: 20150528
  Serious: Yes (Hospitalization)
  Sender: FDA-Public Use
  Company Number: None

PATIENT
  Age: 24 Year
  Sex: Male
  Weight: 90.72 kg

DRUGS (1)
  1. NOW NIACIN NUTRITIONAL HEALTH [Suspect]
     Active Substance: DIETARY SUPPLEMENT
     Indication: FUNCTIONAL GASTROINTESTINAL DISORDER
     Dates: start: 20141010, end: 20141010

REACTIONS (10)
  - Erythema [None]
  - Ill-defined disorder [None]
  - Heart rate increased [None]
  - Burning sensation [None]
  - Headache [None]
  - Swelling [None]
  - Pain [None]
  - Ear discomfort [None]
  - Dizziness [None]
  - Incoherent [None]

NARRATIVE: CASE EVENT DATE: 20141010
